FAERS Safety Report 9648212 (Version 2)
Quarter: 2013Q4

REPORT INFORMATION
  Report Type: Spontaneous
  Country: IT (occurrence: IT)
  Receive Date: 20131028
  Receipt Date: 20131029
  Transmission Date: 20140711
  Serious: Yes (Hospitalization)
  Sender: FDA-Public Use
  Company Number: PHHY2013IT121055

PATIENT
  Age: 79 Year
  Sex: 0

DRUGS (8)
  1. EXELON PATCH [Suspect]
     Dosage: 4.6 MG DAILY
     Route: 062
     Dates: start: 201306
  2. ZOLOFT [Concomitant]
     Dosage: 75 MG DAILY
  3. DELTACORTENE [Concomitant]
     Dosage: 1 DF DAILY
  4. ESOMEPRAZOLE [Concomitant]
     Dosage: 20 MG/DAY
  5. CARDIOASPIRIN [Concomitant]
     Dosage: UNK UKN, UNK
  6. ACTONEL [Concomitant]
     Dosage: UNK UKN, UNK
  7. DIBASE [Concomitant]
     Dosage: UNK UKN, ONCE A MONTH
  8. VIVIMIND [Concomitant]
     Dosage: UNK UKN, UNK

REACTIONS (2)
  - Cognitive disorder [Unknown]
  - Weight decreased [Unknown]
